FAERS Safety Report 18757821 (Version 4)
Quarter: 2021Q1

REPORT INFORMATION
  Report Type: Report from Study
  Country: BR (occurrence: BR)
  Receive Date: 20210119
  Receipt Date: 20210225
  Transmission Date: 20210419
  Serious: Yes (Life-Threatening, Hospitalization, Other)
  Sender: FDA-Public Use
  Company Number: BR-INCYTE CORPORATION-2021IN000369

PATIENT

DRUGS (1)
  1. JAKAVI [Suspect]
     Active Substance: RUXOLITINIB
     Indication: MYELOFIBROSIS
     Dosage: UNK (60 TABLETS)
     Route: 065
     Dates: start: 20191103

REACTIONS (14)
  - Near death experience [Unknown]
  - Muscle rigidity [Unknown]
  - Weight decreased [Unknown]
  - Suspected counterfeit product [Unknown]
  - Drug ineffective [Unknown]
  - Oral disorder [Unknown]
  - Musculoskeletal stiffness [Unknown]
  - Fatigue [Unknown]
  - Malaise [Unknown]
  - Wrong technique in product usage process [Unknown]
  - Pancreatitis acute [Unknown]
  - Anorectal disorder [Unknown]
  - Splenomegaly [Unknown]
  - Gait disturbance [Unknown]

NARRATIVE: CASE EVENT DATE: 201912
